FAERS Safety Report 6104808-6 (Version None)
Quarter: 2009Q1

REPORT INFORMATION
  Report Type: 
  Country: None (occurrence: None)
  Receive Date: 20090306
  Receipt Date: 20090224
  Transmission Date: 20090719
  Serious: Yes (Hospitalization)
  Sender: FDA-Public Use
  Company Number: AT-RANBAXY-2009RR-22248

PATIENT
  Age: 84 Year
  Sex: Male
  Weight: 53 kg

DRUGS (7)
  1. SIMVASTATIN [Suspect]
     Indication: DRUG USE FOR UNKNOWN INDICATION
     Dosage: 20 MG, UNK
  2. INHIBACE ^ROCHE^ [Suspect]
     Indication: DRUG USE FOR UNKNOWN INDICATION
     Dosage: 0.5 MG, UNK
  3. BERODUAL [Concomitant]
  4. COMBIVENT [Concomitant]
  5. ISOMONAT [Concomitant]
     Dosage: 20 MG, UNK
  6. RESPICUR RETARD [Concomitant]
     Dosage: 100 MG, UNK
  7. SPIRIVA [Concomitant]

REACTIONS (2)
  - LEUKOPENIA [None]
  - THROMBOCYTOPENIA [None]
